FAERS Safety Report 12404221 (Version 1)
Quarter: 2016Q2

REPORT INFORMATION
  Report Type: Spontaneous
  Country: US (occurrence: US)
  Receive Date: 20160525
  Receipt Date: 20160525
  Transmission Date: 20160815
  Serious: Yes (Death)
  Sender: FDA-Public Use
  Company Number: US-LPDUSPRD-20160439

PATIENT

DRUGS (9)
  1. FLUDARABINE [Concomitant]
     Active Substance: FLUDARABINE PHOSPHATE
     Dosage: 120 MG/M2
     Route: 065
  2. MYCOPHENOLATE MOFETIL (MMF). [Suspect]
     Active Substance: MYCOPHENOLATE MOFETIL
     Dosage: DOSE NOT PROVIDED
     Route: 065
  3. CAMPATH [Suspect]
     Active Substance: ALEMTUZUMAB
     Dosage: DOSE NOT PROVIDED
     Route: 065
  4. CYCLOSPORINE INJECTION, USP (866-10) [Suspect]
     Active Substance: CYCLOSPORINE
     Dosage: DOSE NOT PROVIDED
     Route: 065
  5. PREDNISONE. [Suspect]
     Active Substance: PREDNISONE
  6. CYCLOPHOSPHAMIDE. [Concomitant]
     Active Substance: CYCLOPHOSPHAMIDE
     Dosage: 200 MG/KG
     Route: 065
  7. METHOTREXATE [Suspect]
     Active Substance: METHOTREXATE
     Dosage: DOSE NOT PROVIDED
     Route: 065
  8. CYTARABINE. [Concomitant]
     Active Substance: CYTARABINE
     Dosage: 2G/M2
     Route: 065
  9. BUSULFAN INJECTION (0517-0920-01) [Concomitant]
     Dosage: 16 MG/KG
     Route: 065

REACTIONS (2)
  - Mycobacterial infection [Fatal]
  - Pneumonia [Fatal]
